FAERS Safety Report 20031166 (Version 1)
Quarter: 2021Q4

REPORT INFORMATION
  Report Type: Spontaneous
  Country: US (occurrence: US)
  Receive Date: 20211103
  Receipt Date: 20211103
  Transmission Date: 20220303
  Serious: No
  Sender: FDA-Public Use
  Company Number: US-ALLERGAN-2104146US

PATIENT
  Age: 45 Year
  Sex: Female

DRUGS (2)
  1. VRAYLAR [Suspect]
     Active Substance: CARIPRAZINE
     Indication: Bipolar disorder
     Dosage: 3 MG, QD
     Route: 048
     Dates: end: 202101
  2. VRAYLAR [Suspect]
     Active Substance: CARIPRAZINE
     Dosage: 6 MG
     Route: 048

REACTIONS (4)
  - Crying [Not Recovered/Not Resolved]
  - Therapy interrupted [Unknown]
  - Headache [Not Recovered/Not Resolved]
  - Malaise [Not Recovered/Not Resolved]

NARRATIVE: CASE EVENT DATE: 20210101
